FAERS Safety Report 4377891-6 (Version None)
Quarter: 2004Q2

REPORT INFORMATION
  Report Type: 
  Country: None (occurrence: None)
  Receive Date: 20040601
  Receipt Date: 20040130
  Transmission Date: 20050107
  Serious: No
  Sender: FDA-Public Use
  Company Number: WAES 0402USA00649

PATIENT
  Age: 68 Year
  Sex: Female
  Weight: 53.978 kg

DRUGS (6)
  1. ZETIA [Suspect]
     Indication: HYPERCHOLESTEROLAEMIA
     Dosage: 10 MG, DAILY, PO
     Route: 048
     Dates: start: 20030901, end: 20040101
  2. CELEXA [Concomitant]
  3. ELAVIL [Concomitant]
  4. LASIX [Concomitant]
  5. TENORMIN [Concomitant]
  6. PREDNISONE [Concomitant]

REACTIONS (2)
  - ABDOMINAL PAIN [None]
  - ANOREXIA [None]
